FAERS Safety Report 22036254 (Version 4)
Quarter: 2023Q2

REPORT INFORMATION
  Report Type: Spontaneous
  Country: CA (occurrence: CA)
  Receive Date: 20230225
  Receipt Date: 20230425
  Transmission Date: 20230721
  Serious: Yes (Other)
  Sender: FDA-Public Use
  Company Number: CA-CELLTRION INC.-2023CA003988

PATIENT

DRUGS (5)
  1. INFLECTRA [Suspect]
     Active Substance: INFLIXIMAB-DYYB
     Indication: Crohn^s disease
     Dosage: 360 MG WEEK 0
     Route: 042
     Dates: start: 20230105, end: 20230105
  2. INFLECTRA [Suspect]
     Active Substance: INFLIXIMAB-DYYB
     Dosage: 575 MG Q 2, 6, THEN EVERY 8 WEEKS
     Route: 042
     Dates: start: 20230117, end: 20230117
  3. INFLECTRA [Suspect]
     Active Substance: INFLIXIMAB-DYYB
     Dosage: 575 MG Q 2, 6, THEN EVERY 8 WEEKS
     Route: 042
     Dates: start: 20230215
  4. INFLECTRA [Suspect]
     Active Substance: INFLIXIMAB-DYYB
     Dosage: 575 MG, EVERY 6 WEEKS (THE TREATMENT WAS NOT COMPLETE)
     Route: 042
     Dates: start: 20230412
  5. INFLECTRA [Suspect]
     Active Substance: INFLIXIMAB-DYYB
     Dosage: 600 MG, EVERY 8 WEEK, NOT YET STARTED
     Route: 042

REACTIONS (10)
  - Throat irritation [Recovered/Resolved]
  - Cough [Recovered/Resolved]
  - Chest discomfort [Recovered/Resolved]
  - Hypertension [Unknown]
  - Off label use [Unknown]
  - Condition aggravated [Not Recovered/Not Resolved]
  - Arthralgia [Unknown]
  - Erythema nodosum [Unknown]
  - Heart rate decreased [Unknown]
  - Drug hypersensitivity [Unknown]

NARRATIVE: CASE EVENT DATE: 20230105
